FAERS Safety Report 19680764 (Version 1)
Quarter: 2021Q3

REPORT INFORMATION
  Report Type: Spontaneous
  Country: US (occurrence: US)
  Receive Date: 20210810
  Receipt Date: 20210810
  Transmission Date: 20211014
  Serious: Yes (Other)
  Sender: FDA-Public Use
  Company Number: US-PFIZER INC-202100958132

PATIENT
  Age: 15 Year
  Sex: Female

DRUGS (5)
  1. DOXORUBICIN HCL [Suspect]
     Active Substance: DOXORUBICIN HYDROCHLORIDE
     Dosage: UNK UNK, CYCLIC
  2. IFOSFAMIDE. [Suspect]
     Active Substance: IFOSFAMIDE
     Indication: NUT MIDLINE CARCINOMA
     Dosage: UNK UNK, CYCLIC
  3. CISPLATIN. [Suspect]
     Active Substance: CISPLATIN
     Indication: NUT MIDLINE CARCINOMA
     Dosage: UNK UNK, CYCLIC
  4. VINCRISTINE SULFATE. [Suspect]
     Active Substance: VINCRISTINE SULFATE
     Indication: NUT MIDLINE CARCINOMA
     Dosage: UNK UNK, CYCLIC
  5. DOXORUBICIN HCL [Suspect]
     Active Substance: DOXORUBICIN HYDROCHLORIDE
     Indication: NUT MIDLINE CARCINOMA
     Dosage: UNK UNK, CYCLIC

REACTIONS (7)
  - Nausea [Unknown]
  - Chronic sinusitis [Unknown]
  - Vomiting [Unknown]
  - Weight decreased [Unknown]
  - Anaemia [Unknown]
  - Middle ear effusion [Unknown]
  - Thrombocytopenia [Unknown]
